FAERS Safety Report 9296195 (Version 1)
Quarter: 2013Q2

REPORT INFORMATION
  Report Type: Spontaneous
  Country: VE (occurrence: VE)
  Receive Date: 20130517
  Receipt Date: 20130517
  Transmission Date: 20140414
  Serious: Yes (Life-Threatening, Hospitalization)
  Sender: FDA-Public Use
  Company Number: VE-GLAXOSMITHKLINE-A1023871A

PATIENT
  Age: 19 Year
  Sex: Female

DRUGS (1)
  1. LAMICTAL [Suspect]
     Indication: DEPRESSION
     Dosage: 25MG PER DAY
     Route: 048
     Dates: start: 20120715, end: 20120803

REACTIONS (5)
  - Eye oedema [Unknown]
  - Eye inflammation [Unknown]
  - Oedema mouth [Unknown]
  - Stomatitis [Unknown]
  - Rash generalised [Unknown]
